FAERS Safety Report 7591594-6 (Version None)
Quarter: 2011Q3

REPORT INFORMATION
  Report Type: 
  Country: None (occurrence: None)
  Receive Date: 20110701
  Receipt Date: 20110701
  Transmission Date: 20111222
  Serious: Yes (Hospitalization)
  Sender: FDA-Public Use
  Company Number: None

PATIENT
  Sex: Male
  Weight: 87.3 kg

DRUGS (4)
  1. MERCAPTOPURINE [Suspect]
     Dosage: 20000 MG
  2. VINCRISTINE SULFATE [Suspect]
     Dosage: 10 MG
  3. METHOTREXATE [Suspect]
     Dosage: 673 MG
  4. DEXAMETHASONE [Suspect]
     Dosage: 300 MG

REACTIONS (10)
  - NAUSEA [None]
  - CONVULSION [None]
  - HYPOXIA [None]
  - SUBDURAL HAEMATOMA [None]
  - PNEUMONIA [None]
  - SINUSITIS ASPERGILLUS [None]
  - PYREXIA [None]
  - HEADACHE [None]
  - SINUSITIS FUNGAL [None]
  - NEUTROPENIC SEPSIS [None]
